FAERS Safety Report 19199937 (Version 2)
Quarter: 2021Q2

REPORT INFORMATION
  Report Type: Spontaneous
  Country: US (occurrence: US)
  Receive Date: 20210430
  Receipt Date: 20210617
  Transmission Date: 20210717
  Serious: No
  Sender: FDA-Public Use
  Company Number: US-PFIZER INC-2019010550

PATIENT
  Age: 12 Year
  Sex: Male

DRUGS (5)
  1. GENOTROPIN [Suspect]
     Active Substance: SOMATROPIN
     Dosage: 2 MG, DAILY
     Dates: start: 20190212
  2. GENOTROPIN [Suspect]
     Active Substance: SOMATROPIN
     Dosage: 1.8 MG 3 DAYS A WEEK ALTERNATING WITH 2 MG 3 DAYS A WEEK
     Dates: start: 20190222
  3. GENOTROPIN [Suspect]
     Active Substance: SOMATROPIN
     Dosage: 1.8 MG ALTERNATE WITH 2 MG, 7 DAYS A WEEK
     Dates: start: 20190222
  4. GENOTROPIN [Suspect]
     Active Substance: SOMATROPIN
     Dosage: 2.8 MG AND 3 MG, ALTERNATE DAYS
  5. GENOTROPIN [Suspect]
     Active Substance: SOMATROPIN
     Dosage: 1.9 MG, DAILY

REACTIONS (4)
  - Device use error [Unknown]
  - Device physical property issue [Unknown]
  - Product prescribing error [Unknown]
  - Drug dose omission by device [Unknown]
